FAERS Safety Report 9856931 (Version 2)
Quarter: 2014Q1

REPORT INFORMATION
  Report Type: Spontaneous
  Country: US (occurrence: None)
  Receive Date: 20140128
  Receipt Date: 20140207
  Transmission Date: 20141002
  Serious: Yes (Hospitalization)
  Sender: FDA-Public Use
  Company Number: AUR-APL-2014-00634

PATIENT
  Age: 55 Year
  Sex: Female
  Weight: 89.34 kg

DRUGS (3)
  1. METFORMIN (METFORMIN) [Suspect]
     Indication: DIABETES MELLITUS
     Dosage: 1000 MG IN MORNING, 1000MG IN NIGHT AND 500 MG DURING MID DAY (3 TIMES A DAY), UNKNOWN
  2. CELEBREX (CELECOXIB) [Suspect]
     Indication: CHONDROPATHY
     Dosage: 4 MG, (2 MG, 2 IN 1 D), UNKNOWN
  3. CELEBREX (CELECOXIB) [Suspect]
     Indication: CHONDROPATHY
     Dosage: 4 MG, (2 MG, 2 IN 1 D), UNKNOWN

REACTIONS (2)
  - Drug ineffective [None]
  - Diabetes mellitus [None]
